FAERS Safety Report 7203686-1 (Version None)
Quarter: 2010Q4

REPORT INFORMATION
  Report Type: 
  Country: None (occurrence: None)
  Receive Date: 20101217
  Receipt Date: 20101203
  Transmission Date: 20110411
  Serious: Yes (Hospitalization)
  Sender: FDA-Public Use
  Company Number: 2010GW000947

PATIENT
  Age: 81 Year
  Sex: Male

DRUGS (5)
  1. MAXAIR [Suspect]
     Indication: ASTHMA
     Dosage: 0.2 MG;BID;INH
     Route: 055
  2. LIPITOR [Suspect]
     Indication: PRODUCT USED FOR UNKNOWN INDICATION
  3. PLAVIX [Concomitant]
     Indication: PRODUCT USED FOR UNKNOWN INDICATION
  4. ATENOLOL [Suspect]
     Indication: PRODUCT USED FOR UNKNOWN INDICATION
  5. EYE DROPS (NOS) [Suspect]
     Indication: GLAUCOMA

REACTIONS (1)
  - PNEUMONIA [None]
